FAERS Safety Report 8966712 (Version 1)
Quarter: 2012Q4

REPORT INFORMATION
  Report Type: 
  Country: AU (occurrence: AU)
  Receive Date: 20121217
  Receipt Date: 20121217
  Transmission Date: 20130627
  Serious: Yes (Other)
  Sender: FDA-Public Use
  Company Number: AU-GENZYME-CAMP-1002614

PATIENT

DRUGS (1)
  1. CAMPATH [Suspect]
     Indication: MULTIPLE SCLEROSIS
     Dosage: UNK
     Route: 065

REACTIONS (3)
  - Endocrine ophthalmopathy [Unknown]
  - Hyperthyroidism [Unknown]
  - Off label use [Unknown]
